FAERS Safety Report 8757778 (Version 1)
Quarter: 2012Q4

REPORT INFORMATION
  Report Type: 
  Country: GB (occurrence: GB)
  Receive Date: 20120828
  Receipt Date: 20120828
  Transmission Date: 20130627
  Serious: Yes (Death)
  Sender: FDA-Public Use
  Company Number: PHHY2012GB073425

PATIENT
  Age: 28 Year
  Sex: Female
  Weight: 95 kg

DRUGS (2)
  1. METHOTREXATE [Suspect]
     Indication: PSORIASIS
     Dosage: 20 mg, QW
     Route: 048
     Dates: start: 2005, end: 201205
  2. HUMIRA [Suspect]
     Indication: PSORIASIS
     Dosage: 40 mg, BIW
     Route: 058
     Dates: end: 201205

REACTIONS (2)
  - Glioblastoma [Fatal]
  - Hydrocephalus [Fatal]
